FAERS Safety Report 13534381 (Version 1)
Quarter: 2017Q2

REPORT INFORMATION
  Report Type: Spontaneous
  Country: FR (occurrence: FR)
  Receive Date: 20170510
  Receipt Date: 20170510
  Transmission Date: 20170830
  Serious: Yes (Hospitalization)
  Sender: FDA-Public Use
  Company Number: PHHY2017FR066242

PATIENT
  Age: 57 Year
  Sex: Female

DRUGS (2)
  1. ZOMETA [Suspect]
     Active Substance: ZOLEDRONIC ACID
     Indication: OSTEOPOROTIC FRACTURE
  2. ZOMETA [Suspect]
     Active Substance: ZOLEDRONIC ACID
     Indication: MASTOCYTOSIS
     Dosage: UNK
     Route: 042
     Dates: start: 20170414

REACTIONS (3)
  - Ophthalmic herpes simplex [Unknown]
  - Arthralgia [Recovered/Resolved]
  - Hyperthermia [Recovered/Resolved]

NARRATIVE: CASE EVENT DATE: 20170415
